FAERS Safety Report 9257024 (Version 4)
Quarter: 2013Q2

REPORT INFORMATION
  Report Type: Spontaneous
  Country: DE (occurrence: DE)
  Receive Date: 20130426
  Receipt Date: 20130619
  Transmission Date: 20140414
  Serious: Yes (Hospitalization)
  Sender: FDA-Public Use
  Company Number: DE-JNJFOC-20130411955

PATIENT
  Age: 72 Year
  Sex: Female
  Weight: 75 kg

DRUGS (17)
  1. XARELTO [Suspect]
     Indication: ATRIAL FIBRILLATION
     Route: 048
  2. XARELTO [Suspect]
     Indication: ATRIAL FIBRILLATION
     Route: 048
     Dates: end: 20130314
  3. XARELTO [Suspect]
     Indication: CEREBROVASCULAR ACCIDENT PROPHYLAXIS
     Route: 048
  4. XARELTO [Suspect]
     Indication: CEREBROVASCULAR ACCIDENT PROPHYLAXIS
     Route: 048
     Dates: end: 20130314
  5. CEFUROXIM [Suspect]
     Indication: BRONCHITIS
     Route: 065
  6. TORASEMID [Concomitant]
     Route: 065
  7. CLOPIDOGREL [Concomitant]
     Indication: CEREBRAL PALSY
     Route: 065
  8. SIMVASTATIN [Concomitant]
     Indication: HYPERLIPIDAEMIA
     Route: 065
  9. BISOPROLOL [Concomitant]
     Indication: HYPERTENSION
     Route: 065
  10. IBUPROFEN [Concomitant]
     Route: 065
  11. AMIODARON [Concomitant]
     Route: 065
  12. AMLODIPINE [Concomitant]
     Route: 065
  13. RAMIPRIL [Concomitant]
     Route: 065
  14. METOCLOPRAMID [Concomitant]
     Route: 065
  15. METFORMIN [Concomitant]
     Route: 065
  16. NOVORAPID [Concomitant]
     Route: 065
  17. PROTAPHANE [Concomitant]
     Route: 065

REACTIONS (1)
  - Renal failure acute [Recovered/Resolved]
